FAERS Safety Report 4405562-6 (Version None)
Quarter: 2004Q3

REPORT INFORMATION
  Report Type: 
  Country: None (occurrence: None)
  Receive Date: 20040723
  Receipt Date: 20030930
  Transmission Date: 20050211
  Serious: No
  Sender: FDA-Public Use
  Company Number: US-GLAXOSMITHKLINE-A0428031A

PATIENT
  Age: 64 Year
  Sex: Female

DRUGS (11)
  1. AVANDIA [Suspect]
     Dosage: 4MG PER DAY
     Route: 048
  2. GLUCOVANCE [Concomitant]
  3. ISOSORBIDE [Concomitant]
  4. TOPROL-XL [Concomitant]
  5. ENALAPRIL MALEATE [Concomitant]
  6. ZETIA [Concomitant]
  7. NORVASC [Concomitant]
  8. NIASPAN [Concomitant]
  9. PLAVIX [Concomitant]
  10. MULTI-VITAMIN [Concomitant]
  11. ZOCOR [Concomitant]

REACTIONS (1)
  - WEIGHT INCREASED [None]
